FAERS Safety Report 7313597-9 (Version None)
Quarter: 2011Q1

REPORT INFORMATION
  Report Type: 
  Country: None (occurrence: None)
  Receive Date: 20110225
  Receipt Date: 20110216
  Transmission Date: 20110831
  Serious: Yes (Hospitalization)
  Sender: FDA-Public Use
  Company Number: US-SOLVAY-00211001254

PATIENT
  Age: 63 Year
  Sex: Male
  Weight: 86.363 kg

DRUGS (4)
  1. ACIPHEX [Concomitant]
     Indication: GASTROOESOPHAGEAL REFLUX DISEASE
     Dosage: DAILY DOSE:  UNKNOWN
     Route: 065
  2. CREON [Suspect]
     Indication: DYSPEPSIA
     Dosage: DAILY DOSE: 10 MILLIGRAM(S)
     Route: 065
     Dates: start: 20030101, end: 20110121
  3. CREON [Suspect]
     Dosage: DAILY DOSE: 12 MILLIGRAM(S)
     Route: 065
     Dates: start: 20110121
  4. XANAX [Concomitant]
     Indication: ANXIETY
     Dosage: DAILY DOSE:  UNKNOWN
     Route: 065

REACTIONS (2)
  - HYPOGLYCAEMIA [None]
  - MENINGIOMA [None]
